FAERS Safety Report 8821228 (Version 2)
Quarter: 2012Q4

REPORT INFORMATION
  Report Type: 
  Country: US (occurrence: US)
  Receive Date: 20121002
  Receipt Date: 20121129
  Transmission Date: 20130627
  Serious: Yes (Other)
  Sender: FDA-Public Use
  Company Number: US-B.I. PHARMACEUTICALS,INC./RIDGEFIELD-2012-BP-23388BP

PATIENT
  Sex: Female

DRUGS (1)
  1. COMBIVENT [Suspect]

REACTIONS (2)
  - Mesothelioma [Unknown]
  - Product quality issue [Unknown]
